FAERS Safety Report 5583430-4 (Version None)
Quarter: 2007Q4

REPORT INFORMATION
  Report Type: 
  Country: None (occurrence: None)
  Receive Date: 20071231
  Receipt Date: 20071226
  Transmission Date: 20080405
  Serious: Yes (Death)
  Sender: FDA-Public Use
  Company Number: 163-21880-07110387

PATIENT
  Age: 68 Year
  Sex: Male

DRUGS (2)
  1. REVLIMID [Suspect]
     Indication: 5Q-SYNDROME
     Dosage: 5 MG-10 MG DAILY ORAL
     Route: 048
     Dates: start: 20070611
  2. REVLIMID [Suspect]
     Indication: MYELODYSPLASTIC SYNDROME
     Dosage: 5 MG-10 MG DAILY ORAL
     Route: 048
     Dates: start: 20070611

REACTIONS (3)
  - 5Q-SYNDROME [None]
  - ERYTHROLEUKAEMIA [None]
  - MYELODYSPLASTIC SYNDROME [None]
